FAERS Safety Report 6735712-8 (Version None)
Quarter: 2010Q2

REPORT INFORMATION
  Report Type: 
  Country: None (occurrence: None)
  Receive Date: 20100520
  Receipt Date: 20100520
  Transmission Date: 20101027
  Serious: Yes (Other)
  Sender: FDA-Public Use
  Company Number: None

PATIENT
  Age: 58 Year
  Sex: Female
  Weight: 61.2356 kg

DRUGS (1)
  1. EXTRA STRENGTH ICYHOT PATCH METHOL 5 % CHATTEM [Suspect]
     Indication: MYALGIA
     Dosage: PATCH 8HRS TOP
     Route: 061
     Dates: start: 20100415, end: 20100416

REACTIONS (5)
  - APPLICATION SITE EROSION [None]
  - APPLICATION SITE PAIN [None]
  - APPLICATION SITE SCAB [None]
  - APPLICATION SITE SCAR [None]
  - NO THERAPEUTIC RESPONSE [None]
